FAERS Safety Report 20902008 (Version 2)
Quarter: 2022Q2

REPORT INFORMATION
  Report Type: Spontaneous
  Country: JP (occurrence: JP)
  Receive Date: 20220601
  Receipt Date: 20220629
  Transmission Date: 20220720
  Serious: No
  Sender: FDA-Public Use
  Company Number: JP-dspharma-2022SMP002299AA

PATIENT
  Age: 27 Year
  Sex: Female
  Weight: 39 kg

DRUGS (3)
  1. LATUDA [Suspect]
     Active Substance: LURASIDONE HYDROCHLORIDE
     Indication: Schizophrenia
     Dosage: 80 MG, QD
     Route: 048
     Dates: start: 20210922
  2. ZYPREXA [Concomitant]
     Active Substance: OLANZAPINE
     Indication: Schizophrenia
     Dosage: 5 MG, QD
     Route: 048
     Dates: start: 20210803
  3. NITRAZEPAM [Concomitant]
     Active Substance: NITRAZEPAM
     Indication: Insomnia
     Dosage: 10 MG, QD
     Route: 048
     Dates: start: 20211004

REACTIONS (1)
  - Head discomfort [Recovering/Resolving]

NARRATIVE: CASE EVENT DATE: 20220201
